FAERS Safety Report 15320416 (Version 1)
Quarter: 2018Q3

REPORT INFORMATION
  Report Type: Report from Study
  Country: US (occurrence: US)
  Receive Date: 20180827
  Receipt Date: 20180827
  Transmission Date: 20181010
  Serious: Yes (Death, Hospitalization)
  Sender: FDA-Public Use
  Company Number: US-ROCHE-2010332

PATIENT
  Sex: Female

DRUGS (1)
  1. VALCYTE [Suspect]
     Active Substance: VALGANCICLOVIR HYDROCHLORIDE
     Indication: STEM CELL TRANSPLANT
     Dosage: 450 MG TAB: ^2 TWICE DAILY^
     Route: 048

REACTIONS (4)
  - Intentional product use issue [Unknown]
  - Death [Fatal]
  - Off label use [Unknown]
  - Neoplasm malignant [Unknown]
